FAERS Safety Report 6115507-9 (Version None)
Quarter: 2009Q1

REPORT INFORMATION
  Report Type: 
  Country: None (occurrence: None)
  Receive Date: 20090313
  Receipt Date: 20090305
  Transmission Date: 20090719
  Serious: Yes (Other)
  Sender: FDA-Public Use
  Company Number: US-PFIZER INC-2009170066

PATIENT
  Sex: Female
  Weight: 77.11 kg

DRUGS (3)
  1. CELEBREX [Suspect]
     Indication: ARTHRITIS
  2. DIOVAN HCT [Concomitant]
  3. SYNTHROID [Concomitant]

REACTIONS (5)
  - ARTHRALGIA [None]
  - CHAPPED LIPS [None]
  - FEELING ABNORMAL [None]
  - FUNGAL INFECTION [None]
  - ORAL PAIN [None]
